FAERS Safety Report 7098764-4 (Version None)
Quarter: 2010Q4

REPORT INFORMATION
  Report Type: 
  Country: None (occurrence: None)
  Receive Date: 20101112
  Receipt Date: 20080527
  Transmission Date: 20110411
  Serious: No
  Sender: FDA-Public Use
  Company Number: US-KINGPHARMUSA00001-K200800614

PATIENT
  Age: 85 Year
  Sex: Female

DRUGS (3)
  1. SKELAXIN [Suspect]
     Indication: BACK PAIN
     Dosage: 1 DF QD
     Route: 048
  2. SKELAXIN [Suspect]
     Dosage: 1 DF TID
     Route: 048
     Dates: start: 20080502
  3. GAS X [Suspect]
     Indication: FLATULENCE
     Dosage: 2 DF, ONCE/SINGLE
     Route: 048
     Dates: start: 20080502

REACTIONS (1)
  - SKIN WARM [None]
